FAERS Safety Report 15551350 (Version 1)
Quarter: 2018Q4

REPORT INFORMATION
  Report Type: Spontaneous
  Country: CA (occurrence: CA)
  Receive Date: 20181025
  Receipt Date: 20181025
  Transmission Date: 20190205
  Serious: Yes (Other)
  Sender: FDA-Public Use
  Company Number: CA-GALDERMA-CA18043281

PATIENT
  Age: 38 Year
  Sex: Female

DRUGS (1)
  1. APPRILON [Suspect]
     Active Substance: DOXYCYCLINE
     Indication: ACNE
     Route: 048

REACTIONS (4)
  - Peripheral swelling [Unknown]
  - Product use in unapproved indication [Recovered/Resolved]
  - Headache [Unknown]
  - Hypertension [Unknown]
